FAERS Safety Report 5650730-9 (Version None)
Quarter: 2008Q1

REPORT INFORMATION
  Report Type: 
  Country: None (occurrence: None)
  Receive Date: 20080303
  Receipt Date: 20080220
  Transmission Date: 20080703
  Serious: Yes (Hospitalization)
  Sender: FDA-Public Use
  Company Number: 100#08#2008-00959

PATIENT
  Age: 18 Year
  Sex: Female

DRUGS (1)
  1. CARBAMAZEPINE [Suspect]
     Indication: EPILEPSY
     Dosage: 400 MG; 200 MG; 150 MG

REACTIONS (3)
  - DRUG LEVEL BELOW THERAPEUTIC [None]
  - EPILEPSY [None]
  - HEARING IMPAIRED [None]
